FAERS Safety Report 10168870 (Version 1)
Quarter: 2014Q2

REPORT INFORMATION
  Report Type: Spontaneous
  Country: US (occurrence: US)
  Receive Date: 20140513
  Receipt Date: 20140513
  Transmission Date: 20141212
  Serious: Yes (Other)
  Sender: FDA-Public Use
  Company Number: US-BAYER-2014-067584

PATIENT
  Age: 26 Year
  Sex: Female

DRUGS (6)
  1. YAZ [Suspect]
     Dosage: UNK
     Route: 048
     Dates: start: 200601, end: 200801
  2. YASMIN [Suspect]
     Dosage: UNK
     Route: 048
     Dates: start: 200601, end: 200801
  3. OCELLA [Suspect]
     Dosage: UNK
     Route: 048
     Dates: start: 200601, end: 200801
  4. BEYAZ [Suspect]
     Dosage: UNK
     Route: 048
     Dates: start: 200601, end: 200801
  5. GIANVI [Suspect]
     Dosage: UNK
     Route: 048
     Dates: start: 200601, end: 200801
  6. SAFYRAL [Suspect]
     Dosage: UNK
     Route: 048
     Dates: start: 200601, end: 200801

REACTIONS (2)
  - Thrombosis [None]
  - Injury [None]
